FAERS Safety Report 6910403-9 (Version None)
Quarter: 2010Q3

REPORT INFORMATION
  Report Type: 
  Country: None (occurrence: None)
  Receive Date: 20100806
  Receipt Date: 20100727
  Transmission Date: 20110219
  Serious: Yes (Other)
  Sender: FDA-Public Use
  Company Number: US-PFIZER INC-2010094806

PATIENT
  Sex: Female

DRUGS (5)
  1. LOPID [Suspect]
     Dosage: 1200 MG, 3X/DAY
     Dates: start: 20090909, end: 20090919
  2. NORCO [Concomitant]
  3. CYMBALTA [Concomitant]
  4. GABAPENTIN [Concomitant]
     Indication: SWELLING
     Dosage: 1200 MG, 3X/DAY
     Dates: start: 20050101, end: 20090101
  5. GABAPENTIN [Concomitant]
     Dosage: 10 MG, UNK
     Dates: start: 20090101

REACTIONS (5)
  - ACCIDENTAL OVERDOSE [None]
  - MUSCULAR WEAKNESS [None]
  - PYREXIA [None]
  - VISION BLURRED [None]
  - WRONG DRUG ADMINISTERED [None]
